FAERS Safety Report 5285978-9 (Version None)
Quarter: 2007Q2

REPORT INFORMATION
  Report Type: 
  Country: None (occurrence: None)
  Receive Date: 20070404
  Receipt Date: 20070323
  Transmission Date: 20071010
  Serious: Yes (Hospitalization)
  Sender: FDA-Public Use
  Company Number: ES-BRISTOL-MYERS SQUIBB COMPANY-13736806

PATIENT
  Age: 71 Year
  Sex: Female

DRUGS (7)
  1. TRAZODONE HCL [Suspect]
     Route: 048
     Dates: end: 20060129
  2. NOVONORM [Suspect]
     Indication: DIABETES MELLITUS
     Route: 048
     Dates: end: 20060129
  3. DIANBEN [Suspect]
     Indication: DIABETES MELLITUS
     Route: 048
     Dates: end: 20060129
  4. ISCOVER TABS 75 MG [Suspect]
     Route: 048
  5. DIGOXIN [Concomitant]
     Dates: end: 20060130
  6. ARICEPT [Concomitant]
  7. MANIDON [Concomitant]

REACTIONS (1)
  - HEPATITIS [None]
